FAERS Safety Report 20484663 (Version 2)
Quarter: 2022Q1

REPORT INFORMATION
  Report Type: Spontaneous
  Country: US (occurrence: US)
  Receive Date: 20220217
  Receipt Date: 20220307
  Transmission Date: 20220424
  Serious: No
  Sender: FDA-Public Use
  Company Number: US-JNJFOC-20220218942

PATIENT
  Age: 71 Year
  Sex: Female
  Weight: 56.25 kg

DRUGS (2)
  1. SIMPONI ARIA [Suspect]
     Active Substance: GOLIMUMAB
     Indication: Rheumatoid arthritis
     Route: 042
  2. PENTASA [Concomitant]
     Active Substance: MESALAMINE
     Indication: Crohn^s disease

REACTIONS (1)
  - Drug ineffective [Unknown]
